FAERS Safety Report 5512732-2 (Version None)
Quarter: 2007Q4

REPORT INFORMATION
  Report Type: 
  Country: None (occurrence: None)
  Receive Date: 20071112
  Receipt Date: 20071031
  Transmission Date: 20080405
  Serious: Yes (Hospitalization)
  Sender: FDA-Public Use
  Company Number: GB-ROCHE-525626

PATIENT
  Age: 13 Year
  Sex: Male

DRUGS (7)
  1. ISOTRETINOIN [Suspect]
     Indication: ACNE
     Dosage: EQUIVALENT TO 0.5 MG/KG DAILY
     Route: 065
  2. ISOTRETINOIN [Suspect]
     Route: 065
  3. PREDNISOLONE [Concomitant]
     Indication: PAIN
     Dosage: DOSE REDUCED OVER 6 WEEKS THEN STOPPED
     Route: 048
  4. IBUPROFEN [Concomitant]
     Indication: PAIN
  5. SULFASALAZINE [Concomitant]
  6. ERYTHROMYCIN [Concomitant]
     Indication: ACNE
     Route: 048
  7. MORPHINE SULFATE [Concomitant]
     Indication: PAIN
     Route: 048

REACTIONS (1)
  - SAPHO SYNDROME [None]
